FAERS Safety Report 9530268 (Version 2)
Quarter: 2013Q3

REPORT INFORMATION
  Report Type: Spontaneous
  Country: US (occurrence: US)
  Receive Date: 20130917
  Receipt Date: 20130917
  Transmission Date: 20140515
  Serious: Yes (Other)
  Sender: FDA-Public Use
  Company Number: US-RB-058402-13

PATIENT
  Age: 66 Year
  Sex: Male

DRUGS (4)
  1. SUBOXONE TABLET [Suspect]
     Indication: PAIN
     Route: 060
     Dates: start: 2010, end: 201201
  2. SUBOXONE TABLET [Suspect]
     Indication: DRUG DEPENDENCE
     Dosage: DLSING DETAILS UNKNOWN; THE PATIENT SELF-TAPERED
     Route: 060
     Dates: start: 201201, end: 2012
  3. GENERIC BUPRENORPHINE [Suspect]
     Indication: PAIN
     Dosage: DOSING DETAILS UNKNOWN; PRESCRIBED 2 MG TWICE DAILY BUT TRIED TO TAKE AS LITTLE AS POSSIBLE
     Route: 060
     Dates: start: 201211
  4. GENERIC BUPRENORPHINE [Suspect]
     Indication: DRUG DEPENDENCE
     Dosage: DOSING DETAILS UNKNOWN; PRESCRIBED 2 MG TWICE DAILY BUT TRIED TO TAKE AS LITTLE AS POSSIBLE
     Route: 060
     Dates: start: 201211

REACTIONS (19)
  - Hepatitis C [Not Recovered/Not Resolved]
  - Therapeutic response unexpected [Not Recovered/Not Resolved]
  - Underdose [Not Recovered/Not Resolved]
  - Hot flush [Not Recovered/Not Resolved]
  - Cold sweat [Not Recovered/Not Resolved]
  - Drug ineffective [Recovered/Resolved]
  - Dental discomfort [Recovered/Resolved]
  - Off label use [Not Recovered/Not Resolved]
  - Pain [Not Recovered/Not Resolved]
  - Extra dose administered [Not Recovered/Not Resolved]
  - Drug ineffective [Not Recovered/Not Resolved]
  - Restlessness [Not Recovered/Not Resolved]
  - Psychomotor hyperactivity [Not Recovered/Not Resolved]
  - Somnambulism [Not Recovered/Not Resolved]
  - Fall [Recovered/Resolved]
  - Laceration [Not Recovered/Not Resolved]
  - Insomnia [Not Recovered/Not Resolved]
  - Hypersomnia [Not Recovered/Not Resolved]
  - Hepatic enzyme increased [Unknown]
